FAERS Safety Report 12661400 (Version 2)
Quarter: 2016Q3

REPORT INFORMATION
  Report Type: Spontaneous
  Country: US (occurrence: US)
  Receive Date: 20160817
  Receipt Date: 20160901
  Transmission Date: 20161109
  Serious: No
  Sender: FDA-Public Use
  Company Number: US-RELYPSA-RLY2016000930

PATIENT
  Sex: Male

DRUGS (21)
  1. VELTASSA [Suspect]
     Active Substance: PATIROMER
     Indication: HYPERKALAEMIA
     Dosage: 8.4 G, Q.D.
     Route: 048
     Dates: start: 20160524
  2. BENZOCAINE W/BENZYL ALCOHOL [Concomitant]
  3. VITAMIN E                          /00110501/ [Concomitant]
     Active Substance: TOCOPHEROL
  4. BD [Concomitant]
  5. ONE TOUCH [Concomitant]
  6. TORSEMIDE. [Concomitant]
     Active Substance: TORSEMIDE
  7. ATORVASTATIN CALCIUM. [Concomitant]
     Active Substance: ATORVASTATIN CALCIUM
  8. METAMUCIL [Concomitant]
     Active Substance: PLANTAGO SEED
  9. DULOXETINE HCL [Concomitant]
     Active Substance: DULOXETINE HYDROCHLORIDE
  10. SELENIUM [Concomitant]
     Active Substance: SELENIUM
  11. SPHYGMONANOMETER [Concomitant]
  12. DILTIAZEM HCL [Concomitant]
     Active Substance: DILTIAZEM HYDROCHLORIDE
  13. FREESTYLE LANCETS [Concomitant]
  14. METOPROLOL SUCCINATE W/METOPROLOL TARTRATE [Concomitant]
  15. NOVOLOG [Concomitant]
     Active Substance: INSULIN ASPART
  16. SYNTHROID [Concomitant]
     Active Substance: LEVOTHYROXINE SODIUM
  17. VITAMIN D                          /00107901/ [Concomitant]
     Active Substance: ERGOCALCIFEROL
  18. COENZYME Q10 [Concomitant]
     Active Substance: UBIDECARENONE
  19. LANTUS [Concomitant]
     Active Substance: INSULIN GLARGINE
  20. ASPIRIN                            /00002701/ [Concomitant]
     Active Substance: ASPIRIN
  21. MULTIPLE VITAMINS [Concomitant]
     Active Substance: VITAMINS

REACTIONS (1)
  - Constipation [Unknown]
